FAERS Safety Report 7560711-6 (Version None)
Quarter: 2011Q2

REPORT INFORMATION
  Report Type: 
  Country: None (occurrence: None)
  Receive Date: 20110621
  Receipt Date: 20110617
  Transmission Date: 20111010
  Serious: No
  Sender: FDA-Public Use
  Company Number: US-PFIZER INC-2011134202

PATIENT
  Sex: Male
  Weight: 67.12 kg

DRUGS (2)
  1. IBUPROFEN (ADVIL) [Suspect]
     Indication: HEADACHE
     Dosage: 200 MG, UNK
  2. DILANTIN [Concomitant]
     Indication: CONVULSION
     Dosage: 200 MG, 2X/DAY

REACTIONS (1)
  - DRUG INEFFECTIVE [None]
